FAERS Safety Report 25719302 (Version 4)
Quarter: 2025Q4

REPORT INFORMATION
  Report Type: Report from Study
  Country: US (occurrence: US)
  Receive Date: 20250824
  Receipt Date: 20251112
  Transmission Date: 20260117
  Serious: Yes (Hospitalization, Other)
  Sender: AIMMUNE
  Company Number: US-ZENPEP LLC-2025AIMT00803

PATIENT

DRUGS (27)
  1. ZENPEP [Suspect]
     Active Substance: PANCRELIPASE AMYLASE\PANCRELIPASE LIPASE\PANCRELIPASE PROTEASE
     Indication: Pancreatic failure
     Dosage: 60000 - 189600 UNITS
     Route: 048
     Dates: start: 20210701
  2. ZENPEP [Suspect]
     Active Substance: PANCRELIPASE AMYLASE\PANCRELIPASE LIPASE\PANCRELIPASE PROTEASE
     Dosage: 60000 UPS 100CT CAPSULES, 1 TABLET, THREE TIMES A DAY WITH MEALS
     Route: 048
     Dates: start: 20250701
  3. ZENPEP [Suspect]
     Active Substance: PANCRELIPASE AMYLASE\PANCRELIPASE LIPASE\PANCRELIPASE PROTEASE
     Dosage: 60000 UPS UNITS, ONCE, LAST DOSE PRIOR TO EVENTS
     Route: 048
     Dates: start: 20250810, end: 20250810
  4. VENTOLIN HFA [Concomitant]
     Active Substance: ALBUTEROL SULFATE
     Indication: Wheezing
     Dosage: 2 PUFFS EVERY 6 HOURS AS NEEDED
     Dates: start: 20250410
  5. VENTOLIN HFA [Concomitant]
     Active Substance: ALBUTEROL SULFATE
     Indication: Dyspnoea
  6. XANAX [Concomitant]
     Active Substance: ALPRAZOLAM
     Indication: Anxiety
     Dosage: 0.5 MG, 2X/DAY, AS NEEDED
     Route: 048
     Dates: start: 20250716, end: 20250815
  7. ASPIRIN [Concomitant]
     Active Substance: ASPIRIN
     Indication: Product used for unknown indication
     Dosage: 81 MG, 1X/DAY, EVERY MORNING
     Route: 048
     Dates: start: 20231011
  8. ZEBETA [Concomitant]
     Active Substance: BISOPROLOL FUMARATE
     Indication: Product used for unknown indication
     Dosage: 5 MG, 1X/DAY
     Route: 048
     Dates: start: 20250716, end: 20250828
  9. WELLBUTRIN SR [Concomitant]
     Active Substance: BUPROPION HYDROCHLORIDE
     Indication: Tobacco user
     Dosage: 150 MG, 2X/DAY (EVERY 12 HOURS)
     Route: 048
     Dates: start: 20230714
  10. ZYRTEC [Concomitant]
     Active Substance: CETIRIZINE HYDROCHLORIDE
     Indication: Product used for unknown indication
     Dosage: 10 MG, 1X/DAY
     Route: 048
     Dates: start: 20221214
  11. PLAVIX [Concomitant]
     Active Substance: CLOPIDOGREL BISULFATE
     Indication: Product used for unknown indication
     Dosage: 75 MG, 1X/DAY
     Route: 048
     Dates: start: 20250716
  12. BENTYL [Concomitant]
     Active Substance: DICYCLOMINE HYDROCHLORIDE
     Indication: Product used for unknown indication
     Dosage: 10 MG, 3X/DAY
     Route: 048
     Dates: start: 20230714
  13. COLACE [Concomitant]
     Active Substance: DOCUSATE SODIUM
     Indication: Constipation
     Dosage: 100 MG, 2X/DAY, AS NEEDED
     Route: 048
     Dates: start: 20250701
  14. NEXIUM I.V. [Concomitant]
     Active Substance: ESOMEPRAZOLE SODIUM
     Indication: Product used for unknown indication
     Dosage: 40 MG, 1X/DAY, DR CAPSULES
     Route: 048
     Dates: start: 20241204
  15. FLONASE [Concomitant]
     Active Substance: FLUTICASONE PROPIONATE
     Indication: Product used for unknown indication
     Dosage: 50 MCG/ACT NASAL SPRAY, 2 SPRAYS IN EACH NOSTRIL DAILY
     Dates: start: 20250410
  16. NEURONTIN [Concomitant]
     Active Substance: GABAPENTIN
     Indication: Product used for unknown indication
     Dosage: 100 MG, 4X/DAY
     Route: 048
     Dates: start: 20240822
  17. ATARAX [Concomitant]
     Active Substance: HYDROXYZINE HYDROCHLORIDE
     Indication: Anxiety
     Dosage: 24 MG, AS NEEDED, EVERY 6 HOURS
     Route: 048
     Dates: start: 20250716
  18. ATROVENT [Concomitant]
     Active Substance: IPRATROPIUM BROMIDE
     Indication: Product used for unknown indication
     Dosage: 17 MCG/ACT 2 PUFFS 4 TIMES DAILY BEFORE MEALS AND NIGHTLY
     Dates: start: 20241204
  19. LINZESS [Concomitant]
     Active Substance: LINACLOTIDE
     Indication: Product used for unknown indication
     Dosage: 145 MCG CAPSULE 1X/DAY
     Route: 048
     Dates: start: 20240822
  20. CLARITIN [Concomitant]
     Active Substance: LORATADINE
     Indication: Product used for unknown indication
     Dosage: 10 MG, 1X/DAY
     Route: 048
     Dates: start: 20240119
  21. NICODERM CQ [Concomitant]
     Active Substance: NICOTINE
     Indication: Product used for unknown indication
     Dosage: 7MG/24HR PATCH - 1 ON THE SKIN EVERY 24 HOURS
     Route: 062
     Dates: start: 20240822
  22. NITROSTAT [Concomitant]
     Active Substance: NITROGLYCERIN
     Indication: Chest pain
     Dosage: 0.4 MG, AS NEEDED
     Route: 060
     Dates: start: 20210120, end: 20250815
  23. PRILOSEC [Concomitant]
     Active Substance: OMEPRAZOLE MAGNESIUM
     Indication: Product used for unknown indication
     Dosage: 40 MG, 1X/DAY DR CAPSULE
     Route: 048
     Dates: start: 20250716
  24. PROTONIX [Concomitant]
     Active Substance: PANTOPRAZOLE SODIUM
     Indication: Product used for unknown indication
     Dosage: 40 MG, 1X/DAY, BEFORE BREAKFAST
     Route: 048
     Dates: start: 20231011, end: 20250815
  25. MIRALAX [Concomitant]
     Active Substance: POLYETHYLENE GLYCOL 3350
     Indication: Product used for unknown indication
     Dosage: 17 G, 1X/DAY - 17G/SCOOP BULK POWDER
     Route: 048
     Dates: start: 20250701
  26. CRESTOR [Concomitant]
     Active Substance: ROSUVASTATIN CALCIUM
     Indication: Product used for unknown indication
     Dosage: 40 MG, 1X/DAY, NIGHTLY
     Route: 048
     Dates: start: 20250729
  27. VIAGRA [Concomitant]
     Active Substance: SILDENAFIL CITRATE
     Indication: Erectile dysfunction
     Dosage: 100 MG, AS NEEDED
     Route: 048
     Dates: start: 20250716

REACTIONS (8)
  - Dehydration [Recovering/Resolving]
  - Iron deficiency [Recovering/Resolving]
  - Hypomagnesaemia [Recovering/Resolving]
  - Asthenia [Recovering/Resolving]
  - Dizziness [Recovering/Resolving]
  - Vomiting [Recovering/Resolving]
  - Diarrhoea [Recovering/Resolving]
  - Sinus congestion [Unknown]

NARRATIVE: CASE EVENT DATE: 20250811
